FAERS Safety Report 4472042-1 (Version None)
Quarter: 2004Q4

REPORT INFORMATION
  Report Type: 
  Country: None (occurrence: None)
  Receive Date: 20040909
  Receipt Date: 20040604
  Transmission Date: 20050328
  Serious: Yes (Hospitalization, Other)
  Sender: FDA-Public Use
  Company Number: F03200400061

PATIENT
  Age: 62 Year
  Sex: Female
  Weight: 92.7 kg

DRUGS (4)
  1. OXALIPLATIN [Suspect]
     Indication: COLORECTAL CANCER METASTATIC
     Dosage: INTRAVENOUS NOS
     Route: 042
     Dates: start: 20031001, end: 20031001
  2. FLUOROURACIL [Suspect]
     Indication: COLORECTAL CANCER METASTATIC
     Dosage: 768 MG IV BOLUS FOLLOWED BY 1152MG INTRAVENOUS
     Route: 042
     Dates: start: 20030917
  3. LEUCOVORIN [Suspect]
     Indication: CARCINOMA
     Dates: start: 20030917
  4. PTK787/ZK 222584 VS. PLACEBO [Concomitant]

REACTIONS (9)
  - ASTHENIA [None]
  - BALANCE DISORDER [None]
  - DEHYDRATION [None]
  - DIZZINESS [None]
  - FATIGUE [None]
  - HYPERTENSION [None]
  - STOMATITIS [None]
  - THROMBOCYTOPENIA [None]
  - VOMITING [None]
